FAERS Safety Report 12670753 (Version 1)
Quarter: 2016Q3

REPORT INFORMATION
  Report Type: Spontaneous
  Country: US (occurrence: US)
  Receive Date: 20160822
  Receipt Date: 20160822
  Transmission Date: 20161109
  Serious: No
  Sender: FDA-Public Use
  Company Number: US-JAZZ-2016-US-005967

PATIENT
  Sex: Male

DRUGS (34)
  1. XYREM [Suspect]
     Active Substance: SODIUM OXYBATE
     Indication: NARCOLEPSY
     Dosage: 3 G, BID
     Route: 048
     Dates: start: 201512, end: 201601
  2. ARICEPT [Concomitant]
     Active Substance: DONEPEZIL HYDROCHLORIDE
  3. REQUIP [Concomitant]
     Active Substance: ROPINIROLE HYDROCHLORIDE
  4. MECLIZINE [Concomitant]
     Active Substance: MECLIZINE HYDROCHLORIDE
  5. NEXIUM [Concomitant]
     Active Substance: ESOMEPRAZOLE MAGNESIUM
  6. THEOPHYLLINE ER [Concomitant]
     Active Substance: THEOPHYLLINE ANHYDROUS
  7. CALCIUM [Concomitant]
     Active Substance: CALCIUM
  8. DALIRESP [Concomitant]
     Active Substance: ROFLUMILAST
  9. XYREM [Suspect]
     Active Substance: SODIUM OXYBATE
     Indication: CATAPLEXY
     Dosage: 4.5 G, BID
     Route: 048
     Dates: start: 201601, end: 2016
  10. INVOKANA [Concomitant]
     Active Substance: CANAGLIFLOZIN
  11. JANUVIA [Concomitant]
     Active Substance: SITAGLIPTIN PHOSPHATE
  12. NOVOLOG [Concomitant]
     Active Substance: INSULIN ASPART
  13. VITAMIN D [Concomitant]
     Active Substance: CHOLECALCIFEROL
  14. CELEBREX [Concomitant]
     Active Substance: CELECOXIB
  15. MUCINEX ER [Concomitant]
  16. ZANAFLEX [Concomitant]
     Active Substance: TIZANIDINE HYDROCHLORIDE
  17. ZYRTEC [Concomitant]
     Active Substance: CETIRIZINE HYDROCHLORIDE
  18. CYMBALTA [Concomitant]
     Active Substance: DULOXETINE HYDROCHLORIDE
  19. LANTUS [Concomitant]
     Active Substance: INSULIN GLARGINE
  20. LYRICA [Concomitant]
     Active Substance: PREGABALIN
  21. SINGULAIR [Concomitant]
     Active Substance: MONTELUKAST SODIUM
  22. ASPIRIN (E.C.) [Concomitant]
     Active Substance: ASPIRIN
  23. FERROUS SULFATE. [Concomitant]
     Active Substance: FERROUS SULFATE
  24. FOLIC ACID. [Concomitant]
     Active Substance: FOLIC ACID
  25. PLAVIX [Concomitant]
     Active Substance: CLOPIDOGREL BISULFATE
  26. TESSALON [Concomitant]
     Active Substance: BENZONATATE
  27. SENNA CONCENTRATE [Concomitant]
     Active Substance: SENNA CONCENTRATE
  28. TAMSULOSIN HCL [Concomitant]
     Active Substance: TAMSULOSIN
  29. TRAZODONE [Concomitant]
     Active Substance: TRAZODONE HYDROCHLORIDE
  30. NUVIGIL [Concomitant]
     Active Substance: ARMODAFINIL
  31. FUROSEMIDE. [Concomitant]
     Active Substance: FUROSEMIDE
  32. NUCYNTA [Concomitant]
     Active Substance: TAPENTADOL HYDROCHLORIDE
  33. BUSPIRONE HCL [Concomitant]
     Active Substance: BUSPIRONE HYDROCHLORIDE
  34. KLOR-CON M20 [Concomitant]
     Active Substance: POTASSIUM CHLORIDE

REACTIONS (2)
  - Confusional state [Unknown]
  - Dementia [Unknown]
